FAERS Safety Report 9295845 (Version 1)
Quarter: 2013Q2

REPORT INFORMATION
  Report Type: Spontaneous
  Country: US (occurrence: US)
  Receive Date: 20130517
  Receipt Date: 20130517
  Transmission Date: 20140414
  Serious: Yes (Hospitalization)
  Sender: FDA-Public Use
  Company Number: US-BAYER-2013-060583

PATIENT
  Age: 29 Year
  Sex: Female
  Weight: 58.96 kg

DRUGS (4)
  1. YAZ [Suspect]
  2. GIANVI [Suspect]
  3. MVI [Concomitant]
  4. ADDERALL XR [Concomitant]
     Dosage: 25 MG, UNK

REACTIONS (1)
  - Deep vein thrombosis [None]
